FAERS Safety Report 20993691 (Version 2)
Quarter: 2022Q3

REPORT INFORMATION
  Report Type: Spontaneous
  Country: CO (occurrence: CO)
  Receive Date: 20220622
  Receipt Date: 20220702
  Transmission Date: 20221027
  Serious: No
  Sender: FDA-Public Use
  Company Number: CO-BAYER-2022A085483

PATIENT
  Sex: Male

DRUGS (2)
  1. RIVAROXABAN [Suspect]
     Active Substance: RIVAROXABAN
     Indication: Thrombosis
     Dosage: UNK
     Route: 048
     Dates: start: 2018, end: 202204
  2. RIVAROXABAN [Suspect]
     Active Substance: RIVAROXABAN
     Indication: Myocardial infarction
     Route: 048

REACTIONS (2)
  - Pain in extremity [Unknown]
  - Incorrect dose administered [Unknown]
